FAERS Safety Report 9335418 (Version 1)
Quarter: 2013Q2

REPORT INFORMATION
  Report Type: Spontaneous
  Country: US (occurrence: US)
  Receive Date: 20130605
  Receipt Date: 20130605
  Transmission Date: 20140414
  Serious: Yes (Hospitalization)
  Sender: FDA-Public Use
  Company Number: US-PFIZER INC-2013165490

PATIENT
  Age: 20 Year
  Sex: Female

DRUGS (6)
  1. ONDANSETRON HCL [Suspect]
     Dosage: 4 MG, UNK
     Route: 042
     Dates: start: 20110911
  2. ONDANSETRON HCL [Suspect]
     Dosage: 4 MG, UNK
     Route: 042
     Dates: start: 20110911
  3. ONDANSETRON HCL [Suspect]
     Dosage: 4 MG, UNK
     Route: 042
     Dates: start: 20110911
  4. ONDANSETRON HCL [Suspect]
     Dosage: 4 MG, UNK
     Route: 042
     Dates: start: 20110911
  5. AZITHROMYCIN [Suspect]
     Indication: PNEUMONIA
     Dosage: 500 MG, UNK
     Route: 042
     Dates: start: 20110912
  6. AZITHROMYCIN [Suspect]
     Dosage: 500 MG, UNK
     Route: 042
     Dates: start: 20110913

REACTIONS (7)
  - Cardiac arrest [Unknown]
  - Ventricular fibrillation [Unknown]
  - Bradycardia [Unknown]
  - Hypotension [Unknown]
  - Electrocardiogram QT prolonged [Not Recovered/Not Resolved]
  - Mydriasis [Unknown]
  - Posture abnormal [Unknown]
